FAERS Safety Report 5006780-9 (Version None)
Quarter: 2006Q2

REPORT INFORMATION
  Report Type: 
  Country: None (occurrence: None)
  Receive Date: 20060516
  Receipt Date: 20060508
  Transmission Date: 20061013
  Serious: Yes (Life-Threatening)
  Sender: FDA-Public Use
  Company Number: GXKR2006GB02606

PATIENT
  Age: 31 Year
  Sex: Female
  Weight: 135 kg

DRUGS (6)
  1. CITALOPRAM (NGX)(CITALOPRAM) [Suspect]
     Indication: DEPRESSION
     Dosage: 10 MG, ORAL
     Route: 048
     Dates: start: 20051202, end: 20060322
  2. BENDROFLUMETHIAZIDE (BENDROFLUMETHIAZIDE) [Concomitant]
  3. IRBESARTAN [Concomitant]
  4. AMLODIPINE [Concomitant]
  5. SALBUTAMOL (SALBUTAMOL) [Concomitant]
  6. FLUTICASONE W/SALMETEROL (FLUTICASONE, SALMETEROL) [Concomitant]

REACTIONS (1)
  - IDIOPATHIC THROMBOCYTOPENIC PURPURA [None]
